FAERS Safety Report 6653350-2 (Version None)
Quarter: 2010Q1

REPORT INFORMATION
  Report Type: 
  Country: None (occurrence: None)
  Receive Date: 20100326
  Receipt Date: 20100312
  Transmission Date: 20100710
  Serious: Yes (Other)
  Sender: FDA-Public Use
  Company Number: PHHY2010ES03195

PATIENT
  Sex: Male

DRUGS (10)
  1. EXELON [Suspect]
     Indication: DEMENTIA
     Dosage: UNK
     Route: 062
     Dates: start: 20091210, end: 20100204
  2. SEGURIL [Concomitant]
  3. ACETYLCYSTEINE [Concomitant]
  4. PANTOPRAZOLE SODIUM [Concomitant]
  5. ACETAMINOPHEN [Concomitant]
  6. ASPIRIN [Concomitant]
  7. DUPHALAC [Concomitant]
     Dosage: UNK
  8. LEXATIN [Concomitant]
     Dosage: 1,5 MG
  9. LORMETAZEPAM [Concomitant]
     Dosage: 1.5-0-1
  10. SINEMET [Concomitant]

REACTIONS (7)
  - AGGRESSION [None]
  - APATHY [None]
  - COMMUNICATION DISORDER [None]
  - CONDITION AGGRAVATED [None]
  - DEMENTIA [None]
  - ENCEPHALOPATHY [None]
  - MOOD ALTERED [None]
